FAERS Safety Report 8342956-0 (Version None)
Quarter: 2012Q2

REPORT INFORMATION
  Report Type: 
  Country: None (occurrence: None)
  Receive Date: 20120508
  Receipt Date: 20120503
  Transmission Date: 20120825
  Serious: Yes (Death, Hospitalization, Other)
  Sender: FDA-Public Use
  Company Number: IN-PFIZER INC-2012053921

PATIENT
  Age: 58 Year
  Sex: Male

DRUGS (1)
  1. SUTENT [Suspect]
     Indication: GASTROINTESTINAL STROMAL TUMOUR
     Dosage: 37.5 MG, 1X/DAY
     Route: 048
     Dates: start: 20110704, end: 20120301

REACTIONS (10)
  - GASTROINTESTINAL STROMAL TUMOUR [None]
  - HAEMOGLOBIN DECREASED [None]
  - ABDOMINAL PAIN [None]
  - DISEASE PROGRESSION [None]
  - RENAL DISORDER [None]
  - SKIN DISCOLOURATION [None]
  - URINARY RETENTION [None]
  - MOUTH ULCERATION [None]
  - PLATELET COUNT DECREASED [None]
  - BLOOD URIC ACID INCREASED [None]
